FAERS Safety Report 19991867 (Version 1)
Quarter: 2021Q4

REPORT INFORMATION
  Report Type: Spontaneous
  Country: US (occurrence: US)
  Receive Date: 20211025
  Receipt Date: 20211025
  Transmission Date: 20220304
  Serious: No
  Sender: FDA-Public Use
  Company Number: US-BEH-2021136920

PATIENT
  Sex: Female

DRUGS (9)
  1. HAEGARDA [Suspect]
     Active Substance: HUMAN C1-ESTERASE INHIBITOR
     Indication: Hereditary angioedema
     Dosage: 9000 INTERNATIONAL UNIT, BIW
     Route: 058
     Dates: start: 20210622
  2. HAEGARDA [Suspect]
     Active Substance: HUMAN C1-ESTERASE INHIBITOR
     Indication: Prophylaxis
  3. EPINEPHRINE [Concomitant]
     Active Substance: EPINEPHRINE
  4. FARXIGA [Concomitant]
     Active Substance: DAPAGLIFLOZIN PROPANEDIOL
  5. LEXAPRO [Concomitant]
     Active Substance: ESCITALOPRAM OXALATE
  6. MITIGARE [Concomitant]
     Active Substance: COLCHICINE
  7. SEMAGLUTIDE [Concomitant]
     Active Substance: SEMAGLUTIDE
  8. SPIRONOLACTONE [Concomitant]
     Active Substance: SPIRONOLACTONE
  9. TRAZODONE [Concomitant]
     Active Substance: TRAZODONE HYDROCHLORIDE

REACTIONS (1)
  - Dizziness [Not Recovered/Not Resolved]
